FAERS Safety Report 13290539 (Version 1)
Quarter: 2017Q1

REPORT INFORMATION
  Report Type: Spontaneous
  Country: CN (occurrence: CN)
  Receive Date: 20170302
  Receipt Date: 20170302
  Transmission Date: 20170428
  Serious: Yes (Other)
  Sender: FDA-Public Use
  Company Number: CN-PFIZER INC-2017088422

PATIENT
  Age: 62 Year
  Sex: Female
  Weight: 45 kg

DRUGS (4)
  1. NORMAL SALINE [Concomitant]
     Active Substance: SODIUM CHLORIDE
     Dosage: 100 ML, (INJECTION)
     Route: 050
  2. GLUCOSE [Concomitant]
     Active Substance: DEXTROSE
     Dosage: UNK, (INJECTION)
  3. ENDOXAN /00021101/ [Suspect]
     Active Substance: CYCLOPHOSPHAMIDE
     Indication: BREAST CANCER
     Dosage: 800 MG, 1X/DAY
     Route: 041
     Dates: start: 20161117, end: 20161117
  4. PHARMORUBICIN [Suspect]
     Active Substance: EPIRUBICIN
     Indication: BREAST CANCER
     Dosage: 110 MG, 1X/DAY
     Route: 041
     Dates: start: 20161117, end: 20161117

REACTIONS (6)
  - Cognitive disorder [Recovering/Resolving]
  - Petit mal epilepsy [Recovering/Resolving]
  - Hyponatraemia [Recovered/Resolved]
  - Nightmare [Recovering/Resolving]
  - Generalised tonic-clonic seizure [Recovered/Resolved]
  - Brain oedema [Recovering/Resolving]

NARRATIVE: CASE EVENT DATE: 20161118
